FAERS Safety Report 7501507-0 (Version None)
Quarter: 2011Q2

REPORT INFORMATION
  Report Type: 
  Country: None (occurrence: None)
  Receive Date: 20110524
  Receipt Date: 20110512
  Transmission Date: 20111010
  Serious: Yes (Other)
  Sender: FDA-Public Use
  Company Number: PHHY2011US42462

PATIENT
  Sex: Female

DRUGS (9)
  1. VITAMIN D [Concomitant]
  2. OMEPRAZOLE [Concomitant]
     Dosage: 20 MG, BID
  3. CARVEDILOL [Concomitant]
     Dosage: 6.25 MG, BID
  4. 50 PLUS VITAMIN [Concomitant]
  5. FEMARA [Suspect]
     Dosage: 2.5 UNK, 1XDAY
     Dates: start: 20070101
  6. CALCIUM CARBONATE [Concomitant]
     Dosage: 600 UNK, BID
  7. SIMVASTATIN [Concomitant]
     Dosage: 40 MG, QD
  8. AMLODIPINE [Concomitant]
     Dosage: 10 MG, QD
  9. ALENDRONATE SODIUM [Concomitant]
     Dosage: 70 MG, QW

REACTIONS (4)
  - FEMUR FRACTURE [None]
  - BONE DENSITY ABNORMAL [None]
  - HIP FRACTURE [None]
  - FALL [None]
